FAERS Safety Report 7375425-5 (Version None)
Quarter: 2011Q1

REPORT INFORMATION
  Report Type: 
  Country: None (occurrence: None)
  Receive Date: 20110325
  Receipt Date: 20110321
  Transmission Date: 20110831
  Serious: Yes (Hospitalization)
  Sender: FDA-Public Use
  Company Number: US-SANOFI-AVENTIS-2011SA007707

PATIENT
  Age: 62 Year
  Sex: Female
  Weight: 81.19 kg

DRUGS (7)
  1. SOLOSTAR [Suspect]
     Indication: TYPE 2 DIABETES MELLITUS
     Dates: start: 20090501
  2. NOVOLOG [Concomitant]
     Dosage: PRN PER SLIDING SCALE
     Dates: start: 20050101
  3. LANTUS [Suspect]
     Indication: TYPE 2 DIABETES MELLITUS
     Dosage: DOSE:8 UNIT(S)
     Route: 058
     Dates: start: 20090501
  4. DIOVANE [Concomitant]
     Dates: start: 19970101
  5. GLIPIZIDE [Concomitant]
     Dates: start: 19900101
  6. METFORMIN [Concomitant]
     Dosage: 1 TABLET TWICE DAILY
     Dates: start: 19900101
  7. BYETTA [Concomitant]
     Dates: start: 20010101

REACTIONS (3)
  - FALL [None]
  - BLOOD GLUCOSE INCREASED [None]
  - BLOOD GLUCOSE DECREASED [None]
